FAERS Safety Report 16326328 (Version 1)
Quarter: 2019Q2

REPORT INFORMATION
  Report Type: Spontaneous
  Country: JP (occurrence: JP)
  Receive Date: 20190517
  Receipt Date: 20190517
  Transmission Date: 20190711
  Serious: Yes (Other)
  Sender: FDA-Public Use
  Company Number: JP-PFIZER INC-2019199782

PATIENT
  Sex: Male

DRUGS (2)
  1. WYPAX 0.5 [Suspect]
     Active Substance: LORAZEPAM
     Dosage: 1 MG, 3X/DAY
  2. WYPAX 0.5 [Suspect]
     Active Substance: LORAZEPAM
     Dosage: 1 DF, UNK

REACTIONS (29)
  - Drug dependence [Unknown]
  - Oxygen saturation decreased [Unknown]
  - Muscular weakness [Unknown]
  - Visual impairment [Unknown]
  - Heart rate decreased [Unknown]
  - Withdrawal syndrome [Unknown]
  - Insomnia [Unknown]
  - Dizziness [Unknown]
  - Malaise [Unknown]
  - Respiratory failure [Unknown]
  - Respiratory depression [Unknown]
  - Chest discomfort [Unknown]
  - Disturbance in attention [Unknown]
  - Arrhythmia [Unknown]
  - Thirst [Unknown]
  - Blood uric acid increased [Unknown]
  - Gout [Unknown]
  - Pain of skin [Unknown]
  - Hyporeflexia [Unknown]
  - Extrasystoles [Unknown]
  - Dyspnoea [Unknown]
  - Decreased appetite [Unknown]
  - Chest pain [Unknown]
  - Hypersensitivity [Unknown]
  - Upper respiratory tract inflammation [Unknown]
  - Taste disorder [Unknown]
  - Dizziness postural [Unknown]
  - Asthenia [Unknown]
  - Bronchitis [Unknown]
